FAERS Safety Report 17388001 (Version 3)
Quarter: 2020Q1

REPORT INFORMATION
  Report Type: Spontaneous
  Country: IT (occurrence: IT)
  Receive Date: 20200206
  Receipt Date: 20200221
  Transmission Date: 20200409
  Serious: Yes (Hospitalization)
  Sender: FDA-Public Use
  Company Number: IT-ALLERGAN-2004353US

PATIENT
  Sex: Female
  Weight: 60 kg

DRUGS (1)
  1. ATROPINE SULFATE 1.0% SOL (0015B) [Suspect]
     Active Substance: ATROPINE SULFATE
     Indication: PREMEDICATION
     Dosage: 0.5 MG, QD
     Route: 030
     Dates: start: 20200122, end: 20200122

REACTIONS (3)
  - Tachycardia [Recovered/Resolved]
  - Confusional state [Recovered/Resolved]
  - Agitation [Recovered/Resolved]

NARRATIVE: CASE EVENT DATE: 20200122
